FAERS Safety Report 19997778 (Version 1)
Quarter: 2021Q4

REPORT INFORMATION
  Report Type: Spontaneous
  Country: DE (occurrence: DE)
  Receive Date: 20211026
  Receipt Date: 20211026
  Transmission Date: 20220303
  Serious: Yes (Other)
  Sender: FDA-Public Use
  Company Number: None

PATIENT
  Age: 65 Year
  Sex: Male
  Weight: 98 kg

DRUGS (12)
  1. METOPROLOL [Interacting]
     Active Substance: METOPROLOL
     Indication: Tachyarrhythmia
     Dosage: UNK
     Route: 048
     Dates: start: 2000
  2. METOPROLOL [Interacting]
     Active Substance: METOPROLOL
     Indication: Supraventricular tachycardia
  3. METOPROLOL [Interacting]
     Active Substance: METOPROLOL
     Indication: Hypertension
  4. METOPROLOL [Interacting]
     Active Substance: METOPROLOL
     Indication: Atrial fibrillation
  5. SIMVASTATIN [Interacting]
     Active Substance: SIMVASTATIN
     Indication: Atrial fibrillation
     Dosage: 20 MILLIGRAM, QD (0-0-0-1, COMPLAINTS IN CASE OF DEVIATION)
     Route: 048
     Dates: start: 2000
  6. SIMVASTATIN [Interacting]
     Active Substance: SIMVASTATIN
     Indication: Hypertension
  7. SIMVASTATIN [Interacting]
     Active Substance: SIMVASTATIN
     Indication: Supraventricular tachycardia
  8. SIMVASTATIN [Interacting]
     Active Substance: SIMVASTATIN
     Indication: Tachyarrhythmia
  9. NEBIVOLOL [Interacting]
     Active Substance: NEBIVOLOL
     Indication: Tachyarrhythmia
     Dosage: 10 MILLIGRAM, QD (NEBIVOLOL 5 MG 1 - 0 - 1 - 0)
     Route: 048
     Dates: start: 2000
  10. NEBIVOLOL [Interacting]
     Active Substance: NEBIVOLOL
     Indication: Atrial fibrillation
  11. NEBIVOLOL [Interacting]
     Active Substance: NEBIVOLOL
     Indication: Supraventricular tachycardia
  12. NEBIVOLOL [Interacting]
     Active Substance: NEBIVOLOL
     Indication: Hypertension

REACTIONS (2)
  - Atrial fibrillation [Recovered/Resolved]
  - Drug interaction [Unknown]

NARRATIVE: CASE EVENT DATE: 20200913
